FAERS Safety Report 4519304-7 (Version None)
Quarter: 2004Q4

REPORT INFORMATION
  Report Type: 
  Country: None (occurrence: None)
  Receive Date: 20041206
  Receipt Date: 19920330
  Transmission Date: 20050328
  Serious: Yes (Hospitalization)
  Sender: FDA-Public Use
  Company Number: US-GLAXOSMITHKLINE-B0157007A

PATIENT
  Age: 64 Year
  Sex: Male

DRUGS (1)
  1. CEFTAZIDIME [Suspect]
     Indication: CELLULITIS
     Dosage: 6G PER DAY
     Route: 042

REACTIONS (4)
  - ASTERIXIS [None]
  - CONFUSIONAL STATE [None]
  - DRUG TOXICITY [None]
  - RENAL FAILURE CHRONIC [None]
